FAERS Safety Report 6278136-2 (Version None)
Quarter: 2009Q3

REPORT INFORMATION
  Report Type: 
  Country: None (occurrence: None)
  Receive Date: 20090722
  Receipt Date: 20070802
  Transmission Date: 20100115
  Serious: Yes (Other)
  Sender: FDA-Public Use
  Company Number: US-ASTRAZENECA-2007UW01783

PATIENT
  Age: 41 Year
  Sex: Female
  Weight: 71.7 kg

DRUGS (29)
  1. SEROQUEL [Suspect]
     Indication: BIPOLAR DISORDER
     Dosage: 50-500 MG (FLUCTUATING)
     Route: 048
     Dates: start: 20030414, end: 20030518
  2. SEROQUEL [Suspect]
     Route: 048
     Dates: start: 20030801, end: 20060501
  3. SEROQUEL [Suspect]
     Dosage: 50-500 MG (FLUCTUATING)
     Route: 048
     Dates: start: 20031007, end: 20060502
  4. LEXAPRO [Concomitant]
     Dates: start: 20050101
  5. RISPERDAL [Concomitant]
     Indication: DEPRESSION
     Dates: start: 20000101
  6. ZYPREXA [Concomitant]
     Indication: DEPRESSION
     Dates: start: 20000101, end: 20000101
  7. GEODON [Concomitant]
     Dates: start: 20050101, end: 20050101
  8. TRAZODONE HCL [Concomitant]
     Dates: start: 20050101, end: 20050101
  9. WELLBUTRIN SR [Concomitant]
  10. MIRTAZAPINE [Concomitant]
  11. FLUOXETINE HCL [Concomitant]
  12. PROTONIX [Concomitant]
  13. ZIPRASIDONE HCL [Concomitant]
  14. TRAZODONE [Concomitant]
  15. PROMETHAZINE HCL [Concomitant]
  16. LOPID [Concomitant]
  17. RISPERIDONE [Concomitant]
  18. PROMETHAZINE W/ CODEINE [Concomitant]
  19. NOVOLOG [Concomitant]
  20. LANTUS [Concomitant]
  21. SINGULAIR [Concomitant]
  22. COMBIVENT [Concomitant]
  23. ACETAMINOPHEN AND HYDROCODONE BITARTRATE [Concomitant]
  24. IBUPROFEN [Concomitant]
  25. VYTORIN [Concomitant]
  26. FLUOCINONIDE [Concomitant]
  27. GABAPENTIN [Concomitant]
  28. PREDNISONE TAB [Concomitant]
  29. TYLENOL (CAPLET) [Concomitant]

REACTIONS (4)
  - DIABETES MELLITUS [None]
  - DIABETIC NEUROPATHY [None]
  - NEUROPATHY PERIPHERAL [None]
  - TYPE 2 DIABETES MELLITUS [None]
